FAERS Safety Report 12637000 (Version 1)
Quarter: 2016Q3

REPORT INFORMATION
  Report Type: Report from Study
  Country: IT (occurrence: IT)
  Receive Date: 20160809
  Receipt Date: 20160809
  Transmission Date: 20161109
  Serious: Yes (Death)
  Sender: FDA-Public Use
  Company Number: IT-ABBVIE-16P-083-1694688-00

PATIENT
  Age: 80 Year
  Sex: Male
  Weight: 70 kg

DRUGS (1)
  1. DUODOPA [Suspect]
     Active Substance: CARBIDOPA\LEVODOPA
     Indication: PARKINSON^S DISEASE
     Dosage: MD 3.3 (+3)?ED 1
     Route: 050
     Dates: start: 20111215, end: 20160724

REACTIONS (2)
  - General physical health deterioration [Fatal]
  - Gastroenteritis [Fatal]

NARRATIVE: CASE EVENT DATE: 201606
